FAERS Safety Report 14840960 (Version 1)
Quarter: 2018Q2

REPORT INFORMATION
  Report Type: Report from Study
  Country: ES (occurrence: ES)
  Receive Date: 20180503
  Receipt Date: 20180503
  Transmission Date: 20180711
  Serious: Yes (Hospitalization)
  Sender: FDA-Public Use
  Company Number: ES-TEVA-2018-ES-888063

PATIENT
  Age: 82 Year
  Sex: Female

DRUGS (1)
  1. AZITHROMYCIN (7019A) [Suspect]
     Active Substance: AZITHROMYCIN
     Indication: ODYNOPHAGIA
     Route: 065
     Dates: start: 20160716, end: 20160717

REACTIONS (2)
  - Asthenia [Recovering/Resolving]
  - Hyponatraemia [Recovering/Resolving]

NARRATIVE: CASE EVENT DATE: 20160717
